FAERS Safety Report 6396002-9 (Version None)
Quarter: 2009Q4

REPORT INFORMATION
  Report Type: 
  Country: None (occurrence: None)
  Receive Date: 20091007
  Receipt Date: 20090917
  Transmission Date: 20100525
  Serious: Yes (Other)
  Sender: FDA-Public Use
  Company Number: 2009SP026619

PATIENT
  Age: 19 Year
  Sex: Male

DRUGS (1)
  1. CORICIDIN [Suspect]
     Indication: SUBSTANCE ABUSE
     Dosage: 24 DF;ONCE;PO
     Route: 048

REACTIONS (13)
  - BALANCE DISORDER [None]
  - DECREASED ACTIVITY [None]
  - DYSARTHRIA [None]
  - EYELID PTOSIS [None]
  - FLUSHING [None]
  - GAIT DISTURBANCE [None]
  - HYPOKINESIA [None]
  - IMPAIRED DRIVING ABILITY [None]
  - IMPRISONMENT [None]
  - MYDRIASIS [None]
  - NYSTAGMUS [None]
  - OCULAR HYPERAEMIA [None]
  - TREMOR [None]
